FAERS Safety Report 6253317-2 (Version None)
Quarter: 2009Q3

REPORT INFORMATION
  Report Type: 
  Country: None (occurrence: None)
  Receive Date: 20090701
  Receipt Date: 20090625
  Transmission Date: 20100115
  Serious: Yes (Hospitalization)
  Sender: FDA-Public Use
  Company Number: US-B.I. PHARMACEUTICALS,INC./RIDGEFIELD-2009-BP-07710BP

PATIENT
  Sex: Male

DRUGS (3)
  1. DULCOLAX [Suspect]
     Indication: CONSTIPATION
     Dosage: 10 MG
     Route: 048
     Dates: start: 20090101, end: 20090101
  2. DULCOLAX [Suspect]
     Dosage: 15 MG
     Route: 048
     Dates: start: 20090101, end: 20090501
  3. DULCOLAX [Suspect]
     Dosage: 20 MG
     Route: 048
     Dates: start: 20090501

REACTIONS (7)
  - BLOOD POTASSIUM DECREASED [None]
  - DRUG INEFFECTIVE [None]
  - FACIAL BONES FRACTURE [None]
  - FALL [None]
  - FRACTURED SACRUM [None]
  - INCORRECT DOSE ADMINISTERED [None]
  - OVERDOSE [None]
